FAERS Safety Report 4903394-3 (Version None)
Quarter: 2006Q1

REPORT INFORMATION
  Report Type: 
  Country: None (occurrence: None)
  Receive Date: 20060203
  Receipt Date: 20060123
  Transmission Date: 20060701
  Serious: Yes (Hospitalization)
  Sender: FDA-Public Use
  Company Number: HQWYE518026JAN06

PATIENT
  Age: 50 Year
  Sex: Male

DRUGS (4)
  1. RAPAMUNE [Suspect]
     Indication: PROPHYLAXIS AGAINST TRANSPLANT REJECTION
     Dosage: 6 MG 1X PER 1 DAY ORAL
     Route: 048
     Dates: start: 20051207, end: 20060120
  2. RAPAMUNE [Suspect]
     Indication: TUBERCULOSIS
     Dosage: 6 MG 1X PER 1 DAY ORAL
     Route: 048
     Dates: start: 20051207, end: 20060120
  3. LAMIVUDINE [Concomitant]
  4. ADALAT - SLOW RELEASE (NIFEDIPINE) [Concomitant]

REACTIONS (9)
  - ALANINE AMINOTRANSFERASE INCREASED [None]
  - ASPARTATE AMINOTRANSFERASE INCREASED [None]
  - BLOOD ALKALINE PHOSPHATASE INCREASED [None]
  - BLOOD POTASSIUM DECREASED [None]
  - DRUG LEVEL INCREASED [None]
  - GAMMA-GLUTAMYLTRANSFERASE INCREASED [None]
  - LIVER FUNCTION TEST ABNORMAL [None]
  - RASH [None]
  - TRANSPLANT REJECTION [None]
